FAERS Safety Report 17079329 (Version 1)
Quarter: 2019Q4

REPORT INFORMATION
  Report Type: Spontaneous
  Country: US (occurrence: US)
  Receive Date: 20191127
  Receipt Date: 20191127
  Transmission Date: 20200122
  Serious: No
  Sender: FDA-Public Use
  Company Number: US-UCBSA-2019009861

PATIENT
  Sex: Female
  Weight: 147.39 kg

DRUGS (1)
  1. CIMZIA [Suspect]
     Active Substance: CERTOLIZUMAB PEGOL
     Indication: RHEUMATOID ARTHRITIS
     Dosage: UNK
     Route: 058
     Dates: start: 201810, end: 201811

REACTIONS (5)
  - Abdominal pain [Unknown]
  - Migraine [Unknown]
  - Chest discomfort [Unknown]
  - Constipation [Unknown]
  - Arthralgia [Unknown]
